FAERS Safety Report 6939027-4 (Version None)
Quarter: 2010Q3

REPORT INFORMATION
  Report Type: 
  Country: None (occurrence: None)
  Receive Date: 20100824
  Receipt Date: 20100818
  Transmission Date: 20110219
  Serious: Yes (Death)
  Sender: FDA-Public Use
  Company Number: JP-BAYER-201012642BYL

PATIENT
  Age: 51 Year
  Sex: Male
  Weight: 72 kg

DRUGS (18)
  1. NEXAVAR [Suspect]
     Indication: RENAL CELL CARCINOMA
     Dosage: UNIT DOSE: 200 MG
     Route: 048
     Dates: start: 20080611, end: 20090319
  2. NEXAVAR [Suspect]
     Dosage: UNIT DOSE: 200 MG
     Route: 048
     Dates: start: 20091221, end: 20100503
  3. OMEPRAL [Suspect]
     Indication: PRODUCT USED FOR UNKNOWN INDICATION
     Dosage: UNIT DOSE: 20 MG
     Route: 048
     Dates: start: 20090718, end: 20100720
  4. LOXONIN [Suspect]
     Indication: PRODUCT USED FOR UNKNOWN INDICATION
     Dosage: UNIT DOSE: 60 MG
     Route: 048
     Dates: start: 20090803, end: 20100518
  5. CATLEP [Concomitant]
     Route: 061
     Dates: start: 20080615
  6. MYSLEE [Concomitant]
     Route: 048
     Dates: start: 20080616, end: 20080616
  7. SUTENT [Concomitant]
     Dosage: 37.5-50MG/DAY
     Route: 048
     Dates: start: 20090319, end: 20091130
  8. FERO-GRADUMET [Concomitant]
     Dosage: UNIT DOSE: 105 MG
     Route: 048
     Dates: start: 20090821, end: 20100720
  9. THYRADIN S [Concomitant]
     Dosage: UNIT DOSE: 50 ?G
     Route: 048
     Dates: start: 20100419, end: 20100720
  10. CYTOTEC [Concomitant]
     Dosage: UNIT DOSE: 200 ?G
     Route: 048
     Dates: start: 20090803, end: 20100720
  11. OXYCONTIN [Concomitant]
     Dosage: 10-80MG/DAY
     Route: 048
     Dates: start: 20090715, end: 20100727
  12. CONCENTRATED RED CELLS [Concomitant]
     Route: 042
     Dates: start: 20100608, end: 20100608
  13. CONCENTRATED RED CELLS [Concomitant]
     Route: 042
     Dates: start: 20100611, end: 20100611
  14. CONCENTRATED RED CELLS [Concomitant]
     Route: 042
     Dates: start: 20100728, end: 20100728
  15. CONCENTRATED RED CELLS [Concomitant]
     Route: 042
     Dates: start: 20100709, end: 20100709
  16. CONCENTRATED RED CELLS [Concomitant]
     Route: 042
     Dates: start: 20100719, end: 20100719
  17. CONCENTRATED RED CELLS [Concomitant]
     Route: 042
     Dates: start: 20100802, end: 20100802
  18. CONCENTRATED RED CELLS [Concomitant]
     Route: 042
     Dates: start: 20100804, end: 20100804

REACTIONS (3)
  - ALOPECIA [None]
  - NEPHROTIC SYNDROME [None]
  - PALMAR ERYTHEMA [None]
